FAERS Safety Report 15153739 (Version 2)
Quarter: 2018Q3

REPORT INFORMATION
  Report Type: Spontaneous
  Country: US (occurrence: US)
  Receive Date: 20180717
  Receipt Date: 20180906
  Transmission Date: 20181010
  Serious: No
  Sender: FDA-Public Use
  Company Number: US-SA-2018SA192038

PATIENT
  Age: 32 Year
  Sex: Male

DRUGS (6)
  1. POLYMYXIN B. [Concomitant]
     Active Substance: POLYMYXIN B
  2. AMOX [AMOXICILLIN] [Concomitant]
  3. TOBRA [TOBRAMYCIN] [Concomitant]
  4. DEXAME [Concomitant]
  5. DUPIXENT [Suspect]
     Active Substance: DUPILUMAB
     Indication: DERMATITIS ATOPIC
     Dosage: 300 MG, QOW
     Route: 058
     Dates: start: 20180210
  6. MELOXICAM. [Concomitant]
     Active Substance: MELOXICAM

REACTIONS (4)
  - Eye pruritus [Recovered/Resolved]
  - Dermatitis [Recovered/Resolved]
  - Rash [Not Recovered/Not Resolved]
  - Eye discharge [Not Recovered/Not Resolved]
